FAERS Safety Report 11052677 (Version 1)
Quarter: 2015Q2

REPORT INFORMATION
  Report Type: Report from Study
  Country: ES (occurrence: None)
  Receive Date: 20150417
  Receipt Date: 20150417
  Transmission Date: 20150821
  Serious: Yes (Hospitalization)
  Sender: FDA-Public Use
  Company Number: DEP_02670_2015

PATIENT
  Age: 69 Year
  Sex: Male
  Weight: 86 kg

DRUGS (1)
  1. PALEXIA [Suspect]
     Active Substance: TAPENTADOL HYDROCHLORIDE
     Indication: CANCER PAIN
     Route: 048
     Dates: start: 20140519, end: 20140522

REACTIONS (8)
  - Agitation [None]
  - Neurotoxicity [None]
  - Fungal infection [None]
  - Cognitive disorder [None]
  - Drug ineffective [None]
  - Hyperaesthesia [None]
  - Nervousness [None]
  - Anxiety [None]

NARRATIVE: CASE EVENT DATE: 20140521
